FAERS Safety Report 7930814-2 (Version None)
Quarter: 2011Q4

REPORT INFORMATION
  Report Type: 
  Country: None (occurrence: None)
  Receive Date: 20111121
  Receipt Date: 20111111
  Transmission Date: 20120403
  Serious: Yes (Life-Threatening)
  Sender: FDA-Public Use
  Company Number: DK-GLAXOSMITHKLINE-B0763781A

PATIENT
  Sex: Male

DRUGS (1)
  1. ZYBAN [Suspect]
     Indication: SMOKING CESSATION THERAPY
     Route: 048
     Dates: start: 20110704, end: 20110722

REACTIONS (10)
  - CHEST PAIN [None]
  - DYSPHAGIA [None]
  - SWELLING [None]
  - HYPERSENSITIVITY [None]
  - URTICARIA [None]
  - DYSPNOEA [None]
  - OROPHARYNGEAL PAIN [None]
  - PENIS DISORDER [None]
  - PRURITUS [None]
  - ECCHYMOSIS [None]
